FAERS Safety Report 5558347-1 (Version None)
Quarter: 2007Q4

REPORT INFORMATION
  Report Type: 
  Country: None (occurrence: None)
  Receive Date: 20071214
  Receipt Date: 20071130
  Transmission Date: 20080405
  Serious: Yes (Other)
  Sender: FDA-Public Use
  Company Number: NZ-RANBAXY-2007RR-11819

PATIENT

DRUGS (2)
  1. LANSOPRAZOLE 15 MG GASTRO-RESISTANT CAPSULES [Suspect]
     Dosage: 30 MG, QD
  2. RANITIDINE 300 MG TABLETS [Suspect]
     Dosage: 300 MG, BID
     Route: 048

REACTIONS (1)
  - SKIN DISCOLOURATION [None]
